FAERS Safety Report 8226495-3 (Version None)
Quarter: 2012Q1

REPORT INFORMATION
  Report Type: 
  Country: None (occurrence: None)
  Receive Date: 20120322
  Receipt Date: 20120312
  Transmission Date: 20120608
  Serious: Yes (Other)
  Sender: FDA-Public Use
  Company Number: US-ASTRAZENECA-2011SE32247

PATIENT
  Age: 48 Year
  Sex: Female

DRUGS (7)
  1. ZANTAC [Concomitant]
     Dosage: ONE AS NEEDED, TWO IF SYMPTOMS WERE REALLY BAD
  2. CALCIUM CARBONATE [Concomitant]
     Indication: BLOOD CALCIUM DECREASED
     Dates: start: 20090101
  3. PEPCID [Concomitant]
     Dosage: ONE AS NEEDED, TWO IF SYMPTOMS WERE REALLY BAD
  4. VITAMIN D [Concomitant]
     Indication: VITAMIN D DEFICIENCY
     Dosage: DAILY
     Dates: start: 20090101
  5. NEXIUM [Suspect]
     Indication: GASTROOESOPHAGEAL REFLUX DISEASE
     Route: 048
     Dates: start: 20040101, end: 20110101
  6. PREVACID [Concomitant]
     Indication: GASTROOESOPHAGEAL REFLUX DISEASE
  7. MULTI-VITAMINS [Concomitant]

REACTIONS (6)
  - VITAMIN D DEFICIENCY [None]
  - SKELETAL INJURY [None]
  - CALCIUM DEFICIENCY [None]
  - FOOT FRACTURE [None]
  - ARTHRITIS [None]
  - FRACTURE [None]
